FAERS Safety Report 19474546 (Version 1)
Quarter: 2021Q2

REPORT INFORMATION
  Report Type: Report from Study
  Country: JP (occurrence: JP)
  Receive Date: 20210629
  Receipt Date: 20210629
  Transmission Date: 20210717
  Serious: Yes (Hospitalization)
  Sender: FDA-Public Use
  Company Number: JP-EISAI MEDICAL RESEARCH-EC-2021-095008

PATIENT
  Age: 77 Year
  Sex: Male
  Weight: 51 kg

DRUGS (9)
  1. NIVOLUMAB(GENETICAL RECOMBINATION) [Suspect]
     Active Substance: NIVOLUMAB
     Indication: OESOPHAGEAL CARCINOMA
     Route: 042
     Dates: start: 20210616, end: 20210616
  2. TRANILAST [Concomitant]
     Active Substance: TRANILAST
     Dates: start: 202103
  3. HYALURONATE NA [Concomitant]
     Active Substance: HYALURONATE SODIUM
  4. RIZABEN [Concomitant]
     Active Substance: TRANILAST
  5. PURIFIED SODIUM HYALURONATE [Concomitant]
     Dates: start: 202103
  6. ERIBULIN [Suspect]
     Active Substance: ERIBULIN
     Indication: OESOPHAGEAL CARCINOMA
     Route: 042
     Dates: start: 20210616, end: 20210616
  7. LOXOPROFEN SODIUM HYDRATE [Concomitant]
     Active Substance: LOXOPROFEN SODIUM DIHYDRATE
     Dates: start: 20210604
  8. TAKECAB [Concomitant]
     Active Substance: VONOPRAZAN FUMARATE
  9. VONOPRAZAN FUMARATE [Concomitant]
     Active Substance: VONOPRAZAN FUMARATE
     Dates: start: 20190215

REACTIONS (1)
  - Pyrexia [Recovered/Resolved]

NARRATIVE: CASE EVENT DATE: 20210618
